FAERS Safety Report 8601003-3 (Version None)
Quarter: 2012Q3

REPORT INFORMATION
  Report Type: 
  Country: None (occurrence: None)
  Receive Date: 20120817
  Receipt Date: 20120813
  Transmission Date: 20120928
  Serious: Yes (Other)
  Sender: FDA-Public Use
  Company Number: DE-UCBSA-060378

PATIENT
  Age: 53 Year
  Sex: Female

DRUGS (3)
  1. PROPRANOLOL HCL [Concomitant]
     Indication: TREMOR
     Route: 048
     Dates: start: 20000101
  2. ROCEPHIN [Suspect]
     Indication: LYME DISEASE
     Route: 042
     Dates: start: 20120422, end: 20120506
  3. KEPPRA [Suspect]
     Indication: EPILEPSY
     Route: 048
     Dates: start: 20120315

REACTIONS (2)
  - ANOSMIA [None]
  - AGEUSIA [None]
